FAERS Safety Report 7194046-0 (Version None)
Quarter: 2010Q4

REPORT INFORMATION
  Report Type: 
  Country: None (occurrence: None)
  Receive Date: 20101223
  Receipt Date: 20100920
  Transmission Date: 20110411
  Serious: No
  Sender: FDA-Public Use
  Company Number: US-AMGEN-TCS431107

PATIENT

DRUGS (4)
  1. ENBREL [Suspect]
     Indication: RHEUMATOID ARTHRITIS
     Dosage: 50 MG, QWK
     Route: 058
     Dates: start: 20100730
  2. ENBREL [Suspect]
     Indication: PSORIATIC ARTHROPATHY
  3. TOPROL-XL [Concomitant]
     Dosage: 50 MG, QD
  4. ACETYLSALICYLIC ACID [Concomitant]
     Dosage: 81 MG, QD

REACTIONS (1)
  - VISION BLURRED [None]
